FAERS Safety Report 14848797 (Version 1)
Quarter: 2018Q2

REPORT INFORMATION
  Report Type: Spontaneous
  Country: US (occurrence: US)
  Receive Date: 20180504
  Receipt Date: 20180504
  Transmission Date: 20180711
  Serious: No
  Sender: FDA-Public Use
  Company Number: US-TARO-2018TAR00215

PATIENT
  Age: 84 Year
  Sex: Female
  Weight: 79.37 kg

DRUGS (2)
  1. NYSTATIN + TRIAMCINOLONE ACETONIDE OINTMENT [Suspect]
     Active Substance: NYSTATIN\TRIAMCINOLONE ACETONIDE
     Dosage: ^ONE LITTLE AMOUNT IN THE APPLICATOR^, ONCE
     Route: 067
     Dates: start: 20180309, end: 20180309
  2. PREMARIN [Concomitant]
     Active Substance: ESTROGENS, CONJUGATED
     Route: 067

REACTIONS (3)
  - Wrong drug administered [Recovered/Resolved]
  - Feeling abnormal [Recovered/Resolved]
  - Accidental exposure to product [Recovered/Resolved]

NARRATIVE: CASE EVENT DATE: 201803
